FAERS Safety Report 4923146-8 (Version None)
Quarter: 2006Q1

REPORT INFORMATION
  Report Type: 
  Country: None (occurrence: None)
  Receive Date: 20060113
  Receipt Date: 20050311
  Transmission Date: 20060701
  Serious: Yes (Other)
  Sender: FDA-Public Use
  Company Number: HQWYE199316JUL04

PATIENT
  Age: 61 Year
  Sex: Female
  Weight: 83.99 kg

DRUGS (1)
  1. PREMPRO [Suspect]
     Dosage: ORAL
     Route: 048
     Dates: start: 19980801

REACTIONS (1)
  - MYOCARDIAL INFARCTION [None]
